FAERS Safety Report 24390698 (Version 1)
Quarter: 2024Q4

REPORT INFORMATION
  Report Type: Spontaneous
  Country: ES (occurrence: ES)
  Receive Date: 20241003
  Receipt Date: 20241003
  Transmission Date: 20250114
  Serious: Yes (Other)
  Sender: CELLTRION
  Company Number: None

PATIENT

DRUGS (1)
  1. RITUXIMAB [Suspect]
     Active Substance: RITUXIMAB
     Indication: Nephrotic syndrome
     Dosage: 500 MG, SINGLE (TOTAL)
     Route: 042
     Dates: start: 20230303, end: 20230424

REACTIONS (4)
  - Palpable purpura [Recovered/Resolved]
  - Laryngeal oedema [Recovered/Resolved]
  - Infusion related reaction [Recovered/Resolved]
  - Intentional product use issue [Unknown]

NARRATIVE: CASE EVENT DATE: 20230424
